FAERS Safety Report 5702313-X (Version None)
Quarter: 2008Q2

REPORT INFORMATION
  Report Type: 
  Country: None (occurrence: None)
  Receive Date: 20080411
  Receipt Date: 20080404
  Transmission Date: 20081010
  Serious: Yes (Death)
  Sender: FDA-Public Use
  Company Number: JP-BAYER-200810367BYL

PATIENT
  Age: 61 Year
  Sex: Female

DRUGS (12)
  1. BETAFERON [Suspect]
     Indication: MULTIPLE SCLEROSIS
     Route: 058
     Dates: start: 20050913, end: 20050919
  2. STEROID [Concomitant]
     Indication: MULTIPLE SCLEROSIS
     Dates: start: 20050601, end: 20050601
  3. STEROID [Concomitant]
     Dates: start: 20050701, end: 20050701
  4. STEROID [Concomitant]
     Dates: start: 20051201, end: 20051201
  5. STEROID [Concomitant]
     Dates: start: 20050825, end: 20050801
  6. STEROID [Concomitant]
     Dates: start: 20050801, end: 20050801
  7. PREDONINE [Concomitant]
     Indication: MULTIPLE SCLEROSIS
     Dosage: TOTAL DAILY DOSE: 45 MG
     Route: 048
     Dates: start: 20050610
  8. PREDONINE [Concomitant]
     Dosage: TOTAL DAILY DOSE: 25 MG
     Route: 048
     Dates: start: 20050701
  9. PREDONINE [Concomitant]
     Dosage: TOTAL DAILY DOSE: 35 MG
     Route: 048
     Dates: start: 20050801
  10. PREDONINE [Concomitant]
     Dosage: TOTAL DAILY DOSE: 20 MG
     Route: 048
     Dates: start: 20051101, end: 20051103
  11. GASTER D [Concomitant]
     Dosage: TOTAL DAILY DOSE: 20 MG  UNIT DOSE: 10 MG
     Route: 048
     Dates: start: 20050610, end: 20051103
  12. ACTONEL [Concomitant]
     Dosage: TOTAL DAILY DOSE: 2.5 MG  UNIT DOSE: 2.5 MG
     Route: 048
     Dates: start: 20050610, end: 20051103

REACTIONS (4)
  - ANAEMIA [None]
  - BLOOD LACTATE DEHYDROGENASE INCREASED [None]
  - DIPLEGIA [None]
  - PLATELET COUNT DECREASED [None]
